FAERS Safety Report 4944903-8 (Version None)
Quarter: 2006Q1

REPORT INFORMATION
  Report Type: 
  Country: None (occurrence: None)
  Receive Date: 20060109
  Receipt Date: 20050408
  Transmission Date: 20060701
  Serious: Yes (Other)
  Sender: FDA-Public Use
  Company Number: DSA_26329_2005

PATIENT
  Age: 80 Year
  Sex: Male

DRUGS (4)
  1. CARDIZEM [Suspect]
     Dosage: 360 MG Q DAY PO
     Route: 048
     Dates: start: 20041221, end: 20050101
  2. CARDIZEM [Suspect]
     Dosage: 240 MG Q DAY PO
     Route: 048
     Dates: start: 20041122, end: 20041220
  3. TRACLEER [Suspect]
     Indication: PULMONARY HYPERTENSION
     Dosage: 125 MG BID PO
     Route: 048
     Dates: start: 20041201, end: 20050114
  4. TRACLEER [Suspect]
     Indication: PULMONARY HYPERTENSION
     Dosage: 62.5 MG BID PO
     Route: 048
     Dates: start: 20041108, end: 20041201

REACTIONS (3)
  - ANGIONEUROTIC OEDEMA [None]
  - DRUG HYPERSENSITIVITY [None]
  - RASH [None]
